FAERS Safety Report 13737162 (Version 2)
Quarter: 2017Q3

REPORT INFORMATION
  Report Type: Spontaneous
  Country: IT (occurrence: IT)
  Receive Date: 20170710
  Receipt Date: 20170725
  Transmission Date: 20171127
  Serious: Yes (Death)
  Sender: FDA-Public Use
  Company Number: IT-ABBVIE-17K-083-2033067-00

PATIENT
  Age: 65 Year
  Sex: Male

DRUGS (2)
  1. HUMIRA [Suspect]
     Active Substance: ADALIMUMAB
     Indication: PSORIATIC ARTHROPATHY
     Dosage: INDUCTION DOSE
     Route: 058
     Dates: start: 20131107, end: 20131107
  2. HUMIRA [Suspect]
     Active Substance: ADALIMUMAB
     Dosage: 1 CYCLICAL
     Route: 058
     Dates: end: 20170607

REACTIONS (3)
  - Hypercholesterolaemia [Unknown]
  - Acute myocardial infarction [Fatal]
  - Blood glucose increased [Unknown]

NARRATIVE: CASE EVENT DATE: 20170613
